FAERS Safety Report 4445323-5 (Version None)
Quarter: 2004Q3

REPORT INFORMATION
  Report Type: 
  Country: None (occurrence: None)
  Receive Date: 20040909
  Receipt Date: 20040823
  Transmission Date: 20050211
  Serious: Yes (Life-Threatening, Hospitalization)
  Sender: FDA-Public Use
  Company Number: JP-MERCK-0408USA02108

PATIENT
  Age: 67 Year
  Sex: Male

DRUGS (4)
  1. DETANTOL [Suspect]
     Route: 047
     Dates: start: 20031020
  2. TRUSOPT [Suspect]
     Indication: GLAUCOMA
     Route: 047
     Dates: start: 20030224
  3. XALATAN [Concomitant]
     Indication: GLAUCOMA
     Route: 047
     Dates: start: 20030224
  4. TIMOPTIC-XE [Suspect]
     Indication: GLAUCOMA
     Route: 047
     Dates: start: 20030224, end: 20040823

REACTIONS (1)
  - MYOCARDIAL INFARCTION [None]
